FAERS Safety Report 7094178-1 (Version None)
Quarter: 2010Q4

REPORT INFORMATION
  Report Type: 
  Country: None (occurrence: None)
  Receive Date: 20101110
  Receipt Date: 20101104
  Transmission Date: 20110411
  Serious: Yes (Other)
  Sender: FDA-Public Use
  Company Number: CH-MERCK-1011USA00654

PATIENT
  Age: 44 Year
  Sex: Male
  Weight: 80 kg

DRUGS (4)
  1. VYTORIN [Suspect]
     Indication: HYPERCHOLESTEROLAEMIA
     Route: 048
     Dates: start: 20080401, end: 20100101
  2. ATRIPLA [Concomitant]
     Indication: HIV INFECTION
     Route: 065
     Dates: start: 20080801
  3. EFAVIRENZ [Concomitant]
     Indication: HIV INFECTION
     Route: 048
     Dates: start: 20080201, end: 20100801
  4. TRUVADA [Concomitant]
     Indication: HIV INFECTION
     Route: 065
     Dates: start: 20080201, end: 20100801

REACTIONS (1)
  - TENDONITIS [None]
